FAERS Safety Report 4830812-1 (Version None)
Quarter: 2005Q4

REPORT INFORMATION
  Report Type: 
  Country: None (occurrence: None)
  Receive Date: 20051117
  Receipt Date: 20050929
  Transmission Date: 20060501
  Serious: Yes (Death)
  Sender: FDA-Public Use
  Company Number: US-MERCK-0510USA00445

PATIENT
  Age: 53 Year
  Sex: Male
  Weight: 118 kg

DRUGS (27)
  1. VIOXX [Suspect]
     Indication: ARTHRITIS
     Route: 048
     Dates: start: 20000601, end: 20021028
  2. VIOXX [Suspect]
     Indication: PAIN MANAGEMENT
     Route: 048
     Dates: start: 20000601, end: 20021028
  3. ANUSOL SUPPOSITORIES/OINTMENT [Concomitant]
     Route: 065
  4. AUGMENTIN [Concomitant]
     Route: 065
  5. BRETHINE [Concomitant]
     Route: 065
  6. CARISOPRODOL [Concomitant]
     Route: 065
  7. CEPHALEXIN [Concomitant]
     Route: 065
  8. COLICORT [Concomitant]
     Route: 065
  9. COLYTE [Concomitant]
     Route: 065
  10. DETROL [Concomitant]
     Route: 065
  11. ATROPINE SULFATE AND DIPHENOXYLATE HYDROCHLORIDE [Concomitant]
     Route: 065
  12. DITROPAN [Concomitant]
     Route: 065
  13. ERYTHROMYCIN [Concomitant]
     Route: 065
  14. FLEXERIL [Concomitant]
     Route: 065
  15. FLOMAX (MORNIFLUMATE) [Concomitant]
     Route: 065
  16. HYDROCORTISONE [Concomitant]
     Route: 065
  17. IBUPROFEN [Concomitant]
     Route: 065
  18. KEFLEX [Concomitant]
     Route: 065
  19. KETOCONAZOLE [Concomitant]
     Route: 065
  20. NEOMYCIN [Concomitant]
     Route: 065
  21. PHENAZOPYRIDINE HYDROCHLORIDE [Concomitant]
     Route: 065
  22. PROCTOFOAM [Concomitant]
     Route: 065
  23. PROPRANOLOL HYDROCHLORIDE [Concomitant]
     Route: 065
  24. SUDAL [Concomitant]
     Route: 065
  25. SULFATRIM [Concomitant]
     Route: 065
  26. ZANAFLEX [Concomitant]
     Route: 065
  27. ZYDONE [Concomitant]
     Route: 065

REACTIONS (4)
  - ARTHROSCOPY [None]
  - MYOCARDIAL INFARCTION [None]
  - PROSTATE CANCER [None]
  - SHOULDER ARTHROPLASTY [None]
